FAERS Safety Report 20767714 (Version 4)
Quarter: 2023Q2

REPORT INFORMATION
  Report Type: Other
  Country: IT (occurrence: None)
  Receive Date: 20220429
  Receipt Date: 20230627
  Transmission Date: 20230722
  Serious: No
  Sender: FDA-Public Use
  Company Number: IT-ROCHE-3085545

PATIENT
  Age: 30 Year
  Sex: Female

DRUGS (2)
  1. OCRELIZUMAB [Suspect]
     Active Substance: OCRELIZUMAB
     Indication: Relapsing-remitting multiple sclerosis
     Dosage: SUBSEQUENT DOSE RECEIVED ON 10/FEB/2020
     Route: 042
     Dates: start: 20200127, end: 20200127
  2. OCRELIZUMAB [Suspect]
     Active Substance: OCRELIZUMAB
     Dosage: SUBSEQUENT DOSE RECEIVED ON 05/MAR/2021, 10/SEP/2021, 18/MAR/2022, 23/SEP/2022, 24/MAR/2023
     Route: 042
     Dates: start: 20200901, end: 20200901

REACTIONS (2)
  - COVID-19 [Recovered/Resolved]
  - Herpes zoster [Recovered/Resolved]

NARRATIVE: CASE EVENT DATE: 20211201
